FAERS Safety Report 11032149 (Version 2)
Quarter: 2015Q2

REPORT INFORMATION
  Report Type: Spontaneous
  Country: US (occurrence: US)
  Receive Date: 20150415
  Receipt Date: 20150611
  Transmission Date: 20150821
  Serious: Yes (Hospitalization, Disabling, Other)
  Sender: FDA-Public Use
  Company Number: US-MERCK-1504USA005199

PATIENT
  Sex: Female
  Weight: 79.37 kg

DRUGS (10)
  1. CALAN [Concomitant]
     Active Substance: VERAPAMIL HYDROCHLORIDE
     Dosage: UNK QD
  2. AVALIDE [Concomitant]
     Active Substance: HYDROCHLOROTHIAZIDE\IRBESARTAN
     Dosage: UNK QD
  3. PREMPRO [Concomitant]
     Active Substance: ESTROGENS, CONJUGATED\MEDROXYPROGESTERONE ACETATE
     Dosage: UNK, QD
  4. XANAX [Concomitant]
     Active Substance: ALPRAZOLAM
     Dosage: 0.5 UNK, HS
  5. FOSAMAX [Suspect]
     Active Substance: ALENDRONATE SODIUM
     Indication: BONE DENSITY DECREASED
     Dosage: UNK UNK, QD
     Route: 048
     Dates: start: 1995
  6. LOPRESSOR [Concomitant]
     Active Substance: METOPROLOL TARTRATE
     Dosage: UNK QD
  7. FOSAMAX [Suspect]
     Active Substance: ALENDRONATE SODIUM
     Dosage: 70 MG, QW
     Route: 048
     Dates: start: 20070213
  8. ASPIRIN. [Concomitant]
     Active Substance: ASPIRIN
     Dosage: 81 MG, QD
  9. IMDUR [Concomitant]
     Active Substance: ISOSORBIDE MONONITRATE
     Dosage: UNK, QD
  10. ALENDRONATE SODIUM. [Suspect]
     Active Substance: ALENDRONATE SODIUM
     Indication: BONE DENSITY DECREASED
     Dosage: 70 MG, QW
     Route: 048
     Dates: start: 20080603, end: 2010

REACTIONS (29)
  - Intramedullary rod insertion [Unknown]
  - Fracture nonunion [Unknown]
  - Device breakage [Unknown]
  - Medical device removal [Unknown]
  - Hypercholesterolaemia [Unknown]
  - Femur fracture [Unknown]
  - Fracture nonunion [Unknown]
  - Device failure [Unknown]
  - Spinal osteoarthritis [Unknown]
  - Anxiety disorder [Unknown]
  - Internal fixation of fracture [Unknown]
  - Constipation [Unknown]
  - Fracture nonunion [Unknown]
  - Intramedullary rod insertion [Unknown]
  - Fall [Unknown]
  - Anaemia postoperative [Unknown]
  - Coronary artery disease [Unknown]
  - Medical device removal [Unknown]
  - Femur fracture [Unknown]
  - Bone graft [Unknown]
  - Femur fracture [Unknown]
  - Carpal tunnel decompression [Unknown]
  - Internal fixation of fracture [Unknown]
  - Osteoarthritis [Unknown]
  - Angina pectoris [Unknown]
  - Intramedullary rod insertion [Unknown]
  - Osteopenia [Unknown]
  - Hypertrophic scar [Unknown]
  - Diabetes mellitus [Unknown]

NARRATIVE: CASE EVENT DATE: 200902
